FAERS Safety Report 25784345 (Version 1)
Quarter: 2025Q3

REPORT INFORMATION
  Report Type: Report from Study
  Country: CA (occurrence: CA)
  Receive Date: 20250910
  Receipt Date: 20250910
  Transmission Date: 20251021
  Serious: Yes (Death)
  Sender: TEVA
  Company Number: CA-TEVA-VS-3370025

PATIENT
  Age: 54 Year
  Sex: Male

DRUGS (2)
  1. DOXAZOSIN MESYLATE [Suspect]
     Active Substance: DOXAZOSIN MESYLATE
     Indication: Product used for unknown indication
     Route: 065
  2. TOLVAPTAN [Suspect]
     Active Substance: TOLVAPTAN
     Indication: Congenital cystic kidney disease
     Route: 048

REACTIONS (10)
  - Complications of transplanted liver [Fatal]
  - Polyuria [Fatal]
  - Migraine [Fatal]
  - Fatigue [Fatal]
  - Renal pain [Fatal]
  - COVID-19 [Fatal]
  - Aspartate aminotransferase increased [Fatal]
  - Nausea [Fatal]
  - Malaise [Fatal]
  - Polydipsia [Fatal]
